FAERS Safety Report 17647121 (Version 2)
Quarter: 2020Q4

REPORT INFORMATION
  Report Type: Spontaneous
  Country: US (occurrence: US)
  Receive Date: 20200408
  Receipt Date: 20201117
  Transmission Date: 20210113
  Serious: Yes (Other)
  Sender: FDA-Public Use
  Company Number: US-ASTRAZENECA-2018SF65535

PATIENT
  Age: 23926 Day
  Sex: Female
  Weight: 84.8 kg

DRUGS (46)
  1. PROTONIX [Concomitant]
     Active Substance: PANTOPRAZOLE SODIUM
  2. LANTUS [Concomitant]
     Active Substance: INSULIN GLARGINE
  3. MELOXICAM. [Concomitant]
     Active Substance: MELOXICAM
     Dates: start: 20150103
  4. LORATADINE. [Concomitant]
     Active Substance: LORATADINE
     Dates: start: 20131001
  5. OMEPRAZOLE. [Suspect]
     Active Substance: OMEPRAZOLE
     Indication: GASTROOESOPHAGEAL REFLUX DISEASE
     Dosage: GENERIC
     Route: 065
     Dates: start: 20151029
  6. ZOFRAN [Concomitant]
     Active Substance: ONDANSETRON HYDROCHLORIDE
  7. HYDRALAZINE [Concomitant]
     Active Substance: HYDRALAZINE HYDROCHLORIDE
  8. LAMOTRIGINE. [Concomitant]
     Active Substance: LAMOTRIGINE
  9. BUPROPION. [Concomitant]
     Active Substance: BUPROPION
  10. CLONIDINE. [Concomitant]
     Active Substance: CLONIDINE
     Dates: start: 20141004
  11. PIOGLITAZONE. [Concomitant]
     Active Substance: PIOGLITAZONE
  12. BETHANECHOL [Concomitant]
     Active Substance: BETHANECHOL
  13. ENALAPRIL [Concomitant]
     Active Substance: ENALAPRIL
     Dates: start: 20130115
  14. INVOKANA [Concomitant]
     Active Substance: CANAGLIFLOZIN
     Dates: start: 20150513
  15. HYDROCODONE [Concomitant]
     Active Substance: HYDROCODONE
     Dates: start: 20170502
  16. KEPPRA [Concomitant]
     Active Substance: LEVETIRACETAM
     Dates: start: 20180206
  17. CELEBREX [Concomitant]
     Active Substance: CELECOXIB
  18. SULFASALAZINE. [Concomitant]
     Active Substance: SULFASALAZINE
  19. MONTELUKAST [Concomitant]
     Active Substance: MONTELUKAST SODIUM
  20. NOVOLIN NOS [Concomitant]
     Active Substance: INSULIN HUMAN
  21. VITAMIN D [Concomitant]
     Active Substance: VITAMIN D NOS
  22. NEXIUM [Suspect]
     Active Substance: ESOMEPRAZOLE MAGNESIUM
     Indication: GASTROOESOPHAGEAL REFLUX DISEASE
     Route: 048
  23. NEXIUM [Suspect]
     Active Substance: ESOMEPRAZOLE MAGNESIUM
     Indication: GASTROOESOPHAGEAL REFLUX DISEASE
     Route: 048
     Dates: start: 20140718
  24. KLOR-CON [Concomitant]
     Active Substance: POTASSIUM CHLORIDE
     Dates: start: 20160419
  25. METFORMIN [Concomitant]
     Active Substance: METFORMIN HYDROCHLORIDE
     Dates: start: 20171120
  26. PLAQUENIL [Concomitant]
     Active Substance: HYDROXYCHLOROQUINE SULFATE
  27. SIMVASTATIN. [Concomitant]
     Active Substance: SIMVASTATIN
  28. HYDROCODONE [Concomitant]
     Active Substance: HYDROCODONE
  29. VOLTAREN [Concomitant]
     Active Substance: DICLOFENAC SODIUM
  30. GLIPIZIDE. [Concomitant]
     Active Substance: GLIPIZIDE
  31. HUMULIN NOS [Concomitant]
     Active Substance: INSULIN HUMAN
  32. ELIQUIS [Concomitant]
     Active Substance: APIXABAN
  33. LEVOTHYROXINE. [Concomitant]
     Active Substance: LEVOTHYROXINE
     Dates: start: 20181011
  34. PROPANOLOL [Concomitant]
     Active Substance: PROPRANOLOL HYDROCHLORIDE
  35. ALLOPURINOL. [Concomitant]
     Active Substance: ALLOPURINOL
  36. TEMAZEPAM. [Concomitant]
     Active Substance: TEMAZEPAM
  37. AZITHROMYCIN ANHYDROUS. [Concomitant]
     Active Substance: AZITHROMYCIN ANHYDROUS
     Dates: start: 20141205
  38. NIFEDIPINE. [Concomitant]
     Active Substance: NIFEDIPINE
     Dates: start: 20181011
  39. VERPAMIL [Concomitant]
     Active Substance: VERAPAMIL HYDROCHLORIDE
  40. LABETALOL [Concomitant]
     Active Substance: LABETALOL\LABETALOL HYDROCHLORIDE
  41. ASPIRIN. [Concomitant]
     Active Substance: ASPIRIN
  42. ATENOLOL. [Concomitant]
     Active Substance: ATENOLOL
     Dates: start: 20140329
  43. OMEPRAZOLE. [Suspect]
     Active Substance: OMEPRAZOLE
     Indication: GASTROOESOPHAGEAL REFLUX DISEASE
     Dosage: GENERIC
     Route: 065
  44. CYCLOBENZAPRINE. [Concomitant]
     Active Substance: CYCLOBENZAPRINE
  45. ATORVASTATIN [Concomitant]
     Active Substance: ATORVASTATIN
     Dates: start: 20130115
  46. PHENAZOPYRIDINE. [Concomitant]
     Active Substance: PHENAZOPYRIDINE
     Dates: start: 20150702

REACTIONS (3)
  - Chronic kidney disease [Not Recovered/Not Resolved]
  - Renal failure [Unknown]
  - Rebound acid hypersecretion [Unknown]

NARRATIVE: CASE EVENT DATE: 20170920
